FAERS Safety Report 5793544-1 (Version None)
Quarter: 2008Q2

REPORT INFORMATION
  Report Type: 
  Country: None (occurrence: None)
  Receive Date: 20080627
  Receipt Date: 20080612
  Transmission Date: 20081010
  Serious: Yes (Hospitalization, Other)
  Sender: FDA-Public Use
  Company Number: US-BAYER-200812426BCC

PATIENT
  Age: 83 Year
  Sex: Female
  Weight: 61 kg

DRUGS (7)
  1. BAYER EXTRA STRENGTH PLUS CAPLETS [Suspect]
     Indication: BACK PAIN
     Route: 048
     Dates: start: 20010101
  2. LIPITOR [Concomitant]
  3. METOPROLOL [Concomitant]
  4. QUINAPRIL [Concomitant]
  5. LEVOTHYROXINE SODIUM [Concomitant]
  6. ALOPRIM [Concomitant]
  7. AMLODIPINE [Concomitant]

REACTIONS (4)
  - GLAUCOMA [None]
  - MYOCARDIAL INFARCTION [None]
  - TYPE 2 DIABETES MELLITUS [None]
  - VISUAL ACUITY REDUCED [None]
